FAERS Safety Report 8092648-0 (Version None)
Quarter: 2012Q1

REPORT INFORMATION
  Report Type: 
  Country: None (occurrence: None)
  Receive Date: 20120130
  Receipt Date: 20120130
  Transmission Date: 20120608
  Serious: Yes (Hospitalization)
  Sender: FDA-Public Use
  Company Number: None

PATIENT
  Age: 60 Year
  Sex: Male
  Weight: 89.1 kg

DRUGS (1)
  1. HEPARIN [Suspect]
     Indication: CARDIAC VALVE DISEASE
     Dosage: 1 ML ONCE IV
     Route: 042
     Dates: start: 20111123, end: 20111123

REACTIONS (1)
  - HEPARIN-INDUCED THROMBOCYTOPENIA [None]
